APPROVED DRUG PRODUCT: ETODOLAC
Active Ingredient: ETODOLAC
Strength: 200MG
Dosage Form/Route: CAPSULE;ORAL
Application: A074942 | Product #001
Applicant: SANDOZ INC
Approved: Sep 30, 1997 | RLD: No | RS: No | Type: DISCN